FAERS Safety Report 11540543 (Version 1)
Quarter: 2015Q3

REPORT INFORMATION
  Report Type: Spontaneous
  Country: US (occurrence: US)
  Receive Date: 20150923
  Receipt Date: 20150923
  Transmission Date: 20151125
  Serious: No
  Sender: FDA-Public Use
  Company Number: US-BEH-2015049437

PATIENT
  Sex: Male
  Weight: 30 kg

DRUGS (14)
  1. ZYRTEC [Concomitant]
     Active Substance: CETIRIZINE HYDROCHLORIDE
  2. VALIUM [Concomitant]
     Active Substance: DIAZEPAM
  3. DEXTROSE. [Concomitant]
     Active Substance: DEXTROSE
  4. MELATONIN [Concomitant]
     Active Substance: MELATONIN
  5. METHYL B12 [Concomitant]
  6. LMX [Concomitant]
     Active Substance: LIDOCAINE
  7. PRIVIGEN [Suspect]
     Active Substance: HUMAN IMMUNOGLOBULIN G
     Indication: HYPOGAMMAGLOBULINAEMIA
     Dosage: 20 GM VIAL; DOSING PERIOD 06FEB2015 TO 05MAR2015
     Route: 042
  8. NALTREXONE [Concomitant]
     Active Substance: NALTREXONE
  9. EPIPEN [Concomitant]
     Active Substance: EPINEPHRINE
  10. SODIUM CHLORIDE. [Concomitant]
     Active Substance: SODIUM CHLORIDE
  11. PRIVIGEN [Suspect]
     Active Substance: HUMAN IMMUNOGLOBULIN G
     Indication: HYPOGAMMAGLOBULINAEMIA
     Dosage: 5 GM VIAL; DOSING PERIOD 06FEB2015 TO 05MAR2015
     Route: 042
  12. DIPHENHYDRAMINE. [Concomitant]
     Active Substance: DIPHENHYDRAMINE
  13. IBUPROFEN. [Concomitant]
     Active Substance: IBUPROFEN
  14. ACETAMINOPHEN. [Concomitant]
     Active Substance: ACETAMINOPHEN
     Dosage: PATIENT CAN TAKE ONLY SMALL AMOUNTS DUE TO MEDICAL CONDITIONS

REACTIONS (2)
  - Tic [Unknown]
  - Headache [Unknown]
